FAERS Safety Report 6557740-8 (Version None)
Quarter: 2010Q1

REPORT INFORMATION
  Report Type: 
  Country: None (occurrence: None)
  Receive Date: 20100128
  Receipt Date: 20100128
  Transmission Date: 20100710
  Serious: Yes (Other)
  Sender: FDA-Public Use
  Company Number: None

PATIENT
  Age: 61 Year
  Sex: Female
  Weight: 102.0593 kg

DRUGS (4)
  1. CYMBALTA [Suspect]
     Indication: FIBROMYALGIA
     Dosage: 30-60MG ONCE DAILY BY MOUTH
     Dates: start: 20080601, end: 20091201
  2. ATENOLOL [Concomitant]
  3. BENCIAR/HCT [Concomitant]
  4. TRAZODONE HCL [Concomitant]

REACTIONS (10)
  - ABDOMINAL PAIN UPPER [None]
  - DIZZINESS [None]
  - DRUG WITHDRAWAL SYNDROME [None]
  - IRRITABILITY [None]
  - NAUSEA [None]
  - NEURALGIA [None]
  - PARAESTHESIA [None]
  - PSYCHOMOTOR HYPERACTIVITY [None]
  - VISION BLURRED [None]
  - VISUAL IMPAIRMENT [None]
